FAERS Safety Report 6092821-7 (Version None)
Quarter: 2009Q1

REPORT INFORMATION
  Report Type: 
  Country: None (occurrence: None)
  Receive Date: 20090225
  Receipt Date: 20090216
  Transmission Date: 20090719
  Serious: No
  Sender: FDA-Public Use
  Company Number: FR-ELI_LILLY_AND_COMPANY-FR200902004617

PATIENT
  Age: 37 Year
  Sex: Male

DRUGS (4)
  1. ZYPREXA [Suspect]
     Dosage: 15 MG, DAILY (1/D)
     Route: 048
  2. SEROPLEX [Concomitant]
     Dosage: 10 MG, DAILY (1/D)
     Route: 048
  3. TERCIAN [Concomitant]
     Dosage: 12.5 MG, DAILY (1/D)
     Route: 048
  4. PARKINANE [Concomitant]
     Dosage: 2 MG, DAILY (1/D)
     Route: 048

REACTIONS (1)
  - THROMBOPHLEBITIS [None]
